FAERS Safety Report 13888033 (Version 2)
Quarter: 2017Q4

REPORT INFORMATION
  Report Type: Report from Study
  Country: US (occurrence: US)
  Receive Date: 20170822
  Receipt Date: 20171018
  Transmission Date: 20180320
  Serious: Yes (Other)
  Sender: FDA-Public Use
  Company Number: US-AMGEN-USASL2017125173

PATIENT
  Age: 49 Year
  Sex: Female

DRUGS (1)
  1. ENBREL [Suspect]
     Active Substance: ETANERCEPT
     Indication: PSORIATIC ARTHROPATHY
     Dosage: 50 MG, QWK
     Route: 065

REACTIONS (7)
  - Paraesthesia [Unknown]
  - Family stress [Unknown]
  - Psoriatic arthropathy [Unknown]
  - Headache [Recovering/Resolving]
  - Mood swings [Unknown]
  - Vitamin D decreased [Unknown]
  - Depression [Unknown]

NARRATIVE: CASE EVENT DATE: 201708
